FAERS Safety Report 7817323-6 (Version None)
Quarter: 2011Q4

REPORT INFORMATION
  Report Type: 
  Country: None (occurrence: None)
  Receive Date: 20111017
  Receipt Date: 20111012
  Transmission Date: 20120403
  Serious: Yes (Death)
  Sender: FDA-Public Use
  Company Number: IN-SANOFI-AVENTIS-2011SA065571

PATIENT
  Age: 57 Year
  Sex: Female
  Weight: 70 kg

DRUGS (3)
  1. ENOXAPARIN SODIUM [Suspect]
     Route: 058
     Dates: end: 20111005
  2. ANTIBIOTICS [Concomitant]
  3. PLATELETS [Concomitant]

REACTIONS (4)
  - BRONCHOSPASM [None]
  - CARDIO-RESPIRATORY ARREST [None]
  - PRODUCT QUALITY ISSUE [None]
  - HYPOTENSION [None]
